FAERS Safety Report 5852092-0 (Version None)
Quarter: 2008Q3

REPORT INFORMATION
  Report Type: 
  Country: None (occurrence: None)
  Receive Date: 20080819
  Receipt Date: 20080819
  Transmission Date: 20090109
  Serious: Yes (Hospitalization)
  Sender: FDA-Public Use
  Company Number: None

PATIENT
  Sex: Male
  Weight: 117.9352 kg

DRUGS (8)
  1. DEXAMETHASONE [Suspect]
     Indication: PAIN MANAGEMENT
     Dosage: 3 CC 4 MG/CC 014 030
  2. MARCAINE [Suspect]
     Indication: PAIN MANAGEMENT
     Dosage: 3 CC .25% 014 030
     Dates: start: 20060915
  3. MARCAINE [Suspect]
     Indication: PAIN MANAGEMENT
     Dosage: 3 CC .25% 014 030
     Dates: start: 20060918
  4. MARCAINE [Suspect]
     Indication: PAIN MANAGEMENT
     Dosage: 3 CC .25% 014 030
     Dates: start: 20060920
  5. MARCAINE [Suspect]
     Indication: PAIN MANAGEMENT
     Dosage: 3 CC .25% 014 030
     Dates: start: 20060922
  6. MARCAINE [Suspect]
     Indication: PAIN MANAGEMENT
     Dosage: 3 CC .25% 014 030
     Dates: start: 20060925
  7. MARCAINE [Suspect]
     Indication: PAIN MANAGEMENT
     Dosage: 3 CC .25% 014 030
     Dates: start: 20060929
  8. MARCAINE [Suspect]
     Indication: PAIN MANAGEMENT
     Dosage: 3 CC .25% 014 030
     Dates: start: 20061002

REACTIONS (4)
  - ANGER [None]
  - DEPRESSION [None]
  - HALLUCINATION [None]
  - MOOD SWINGS [None]
